FAERS Safety Report 23325415 (Version 1)
Quarter: 2023Q4

REPORT INFORMATION
  Report Type: Spontaneous
  Country: NL (occurrence: NL)
  Receive Date: 20231221
  Receipt Date: 20231221
  Transmission Date: 20240110
  Serious: Yes (Congenital Anomaly)
  Sender: FDA-Public Use
  Company Number: None

PATIENT
  Age: 0 Year

DRUGS (2)
  1. BUPROPION HYDROCHLORIDE [Suspect]
     Active Substance: BUPROPION HYDROCHLORIDE
     Indication: Depressed mood
     Dosage: 1 X PER DAY 1 PIECE, TABLET MGA 150 MG
     Dates: start: 20221213
  2. IMMUNE GLOBULIN NOS [Suspect]
     Active Substance: IMMUNE GLOBULIN NOS
     Indication: Selective polysaccharide antibody deficiency
     Dosage: 1X PER 4 WEEKS 20G, IMMUNOGLOBULIN INFUSION 100 MG/ML + HYALURONIDASE
     Dates: start: 20230123

REACTIONS (2)
  - Maternal exposure during pregnancy [Unknown]
  - Limb hypoplasia congenital [Unknown]
